FAERS Safety Report 6766805-7 (Version None)
Quarter: 2010Q2

REPORT INFORMATION
  Report Type: 
  Country: None (occurrence: None)
  Receive Date: 20100609
  Receipt Date: 20100531
  Transmission Date: 20101027
  Serious: Yes (Hospitalization)
  Sender: FDA-Public Use
  Company Number: 2010US001877

PATIENT
  Age: 15 Year
  Sex: Male

DRUGS (3)
  1. PROGRAF [Suspect]
     Indication: RENAL TRANSPLANT
     Dosage: 1 MG, BID, ORAL
     Route: 048
     Dates: start: 20030812
  2. MYCOPHENOLATE MOFETIL [Concomitant]
  3. PREDNISONE TAB [Concomitant]

REACTIONS (6)
  - ARTHRALGIA [None]
  - DYSPHAGIA [None]
  - FACIAL PALSY [None]
  - HERPES ZOSTER [None]
  - MYALGIA [None]
  - ODYNOPHAGIA [None]
